FAERS Safety Report 6452697-2 (Version None)
Quarter: 2009Q4

REPORT INFORMATION
  Report Type: 
  Country: None (occurrence: None)
  Receive Date: 20091124
  Receipt Date: 20091112
  Transmission Date: 20100525
  Serious: Yes (Other)
  Sender: FDA-Public Use
  Company Number: JP-PFIZER INC-2009294144

PATIENT
  Age: 69 Year
  Sex: Female

DRUGS (2)
  1. SOLU-MEDROL [Suspect]
     Dosage: UNK
     Dates: start: 20090201
  2. PREDONINE [Suspect]
     Indication: ALLERGIC GRANULOMATOUS ANGIITIS

REACTIONS (1)
  - DIABETES MELLITUS [None]
